FAERS Safety Report 7778469-4 (Version None)
Quarter: 2011Q3

REPORT INFORMATION
  Report Type: 
  Country: None (occurrence: None)
  Receive Date: 20110926
  Receipt Date: 20110916
  Transmission Date: 20111222
  Serious: Yes (Hospitalization)
  Sender: FDA-Public Use
  Company Number: CA-GLAXOSMITHKLINE-B0748943A

PATIENT
  Age: 66 Year
  Sex: Female

DRUGS (6)
  1. TRAZODONE HYDROCHLORIDE [Concomitant]
  2. PAROXETINE HCL [Suspect]
     Indication: PRODUCT USED FOR UNKNOWN INDICATION
     Dosage: 20MG PER DAY
     Route: 065
  3. MIRTAZAPINE [Suspect]
     Indication: PARANOIA
     Dosage: 15MG PER DAY
     Route: 065
  4. TRAMADOL [Concomitant]
  5. HALOPERIDOL [Concomitant]
     Indication: PARANOIA
  6. IMIPRAMINE [Concomitant]

REACTIONS (21)
  - HYPERREFLEXIA [None]
  - CONFUSIONAL STATE [None]
  - TREMOR [None]
  - SEROTONIN SYNDROME [None]
  - HYPOPHAGIA [None]
  - HYPERTONIA [None]
  - WHITE BLOOD CELL COUNT INCREASED [None]
  - MOBILITY DECREASED [None]
  - CIRCADIAN RHYTHM SLEEP DISORDER [None]
  - DISORIENTATION [None]
  - BLOOD CHLORIDE DECREASED [None]
  - BLOOD ALBUMIN DECREASED [None]
  - BLOOD CREATINE PHOSPHOKINASE INCREASED [None]
  - BLOOD CREATININE INCREASED [None]
  - ANION GAP INCREASED [None]
  - BLOOD MAGNESIUM DECREASED [None]
  - BLOOD UREA INCREASED [None]
  - BLOOD CALCIUM DECREASED [None]
  - BLOOD URINE PRESENT [None]
  - INTERNATIONAL NORMALISED RATIO INCREASED [None]
  - URINE KETONE BODY PRESENT [None]
